FAERS Safety Report 14075417 (Version 1)
Quarter: 2017Q4

REPORT INFORMATION
  Report Type: Spontaneous
  Country: US (occurrence: US)
  Receive Date: 20171010
  Receipt Date: 20171010
  Transmission Date: 20180321
  Serious: No
  Sender: FDA-Public Use
  Company Number: US-MYLANLABS-2016M1047180

PATIENT
  Age: 75 Year
  Sex: Male

DRUGS (9)
  1. DENAVIR [Suspect]
     Active Substance: PENCICLOVIR
     Dosage: 1 % CREAM, 4 TO 5 TIMES A DAY
     Route: 061
     Dates: start: 20161003
  2. PROBIOTICS                         /07325001/ [Concomitant]
     Active Substance: BIFIDOBACTERIUM LONGUM\LACTOBACILLUS ACIDOPHILUS\LACTOBACILLUS RHAMNOSUS
     Dosage: UNK, USING FOR ^YEARS^
  3. MULTIVITAMIN                       /00097801/ [Concomitant]
     Active Substance: VITAMINS
     Dosage: UNK, DAILY FOR ^YEARS^
  4. ASPIRIN                            /00002701/ [Concomitant]
     Active Substance: ASPIRIN
     Dosage: 81 MG, DAILY, FOR ^YEARS^
  5. DENAVIR [Suspect]
     Active Substance: PENCICLOVIR
     Indication: ORAL HERPES
     Dosage: UNK
     Route: 061
  6. FERROUS SULFATE. [Concomitant]
     Active Substance: FERROUS SULFATE
     Dosage: 1 TSP (5 ML) DAILY, FOR ^YEARS^
  7. FLECAINIDE [Concomitant]
     Active Substance: FLECAINIDE
     Dosage: 100 MG, BID, USING FOR YEARS
  8. VITAMIN B12 [Concomitant]
     Active Substance: CYANOCOBALAMIN
     Dosage: 1000 ?G INJECTIONS, EVERY 3 WEEKS
  9. FAMOTIDINE. [Concomitant]
     Active Substance: FAMOTIDINE
     Dosage: 20 MG, BID, USING FOR ^YEARS^

REACTIONS (5)
  - Expired product administered [Unknown]
  - Application site exfoliation [Not Recovered/Not Resolved]
  - Application site dysaesthesia [Not Recovered/Not Resolved]
  - Drug ineffective [Unknown]
  - Application site erythema [Not Recovered/Not Resolved]

NARRATIVE: CASE EVENT DATE: 201610
